FAERS Safety Report 10030096 (Version 1)
Quarter: 2014Q1

REPORT INFORMATION
  Report Type: Spontaneous
  Country: US (occurrence: US)
  Receive Date: 20140323
  Receipt Date: 20140323
  Transmission Date: 20141002
  Serious: No
  Sender: FDA-Public Use
  Company Number: US-ALLERGAN-1311775US

PATIENT
  Sex: Female

DRUGS (2)
  1. LATISSE 0.03% [Suspect]
     Indication: GROWTH OF EYELASHES
  2. LATISSE 0.03% [Suspect]
     Indication: HAIR GROWTH ABNORMAL

REACTIONS (6)
  - Rash erythematous [Recovered/Resolved]
  - Off label use [Unknown]
  - Madarosis [Unknown]
  - Madarosis [Unknown]
  - Eye irritation [Unknown]
  - Vision blurred [Unknown]
